FAERS Safety Report 6313565-X (Version None)
Quarter: 2009Q3

REPORT INFORMATION
  Report Type: 
  Country: None (occurrence: None)
  Receive Date: 20090814
  Receipt Date: 20090814
  Transmission Date: 20100115
  Serious: Yes (Hospitalization)
  Sender: FDA-Public Use
  Company Number: None

PATIENT
  Sex: Female
  Weight: 100.2 kg

DRUGS (3)
  1. CYTARABINE [Suspect]
     Dosage: 32.8 MG
     Dates: end: 20090726
  2. ETOPOSIDE [Suspect]
     Dosage: 2500 MG
     Dates: end: 20090726
  3. G-CSF (FILGRASTIM, AMGEN) [Suspect]
     Dosage: 7020 MCG
     Dates: end: 20090812

REACTIONS (3)
  - CULTURE POSITIVE [None]
  - NEUTROPENIA [None]
  - PYREXIA [None]
